FAERS Safety Report 25232648 (Version 5)
Quarter: 2025Q3

REPORT INFORMATION
  Report Type: Report from Study
  Country: EU (occurrence: EU)
  Receive Date: 20250424
  Receipt Date: 20250807
  Transmission Date: 20251021
  Serious: Yes (Congenital Anomaly)
  Sender: ABBVIE
  Company Number: EU-ABBVIE-6243398

PATIENT

DRUGS (2)
  1. LOPINAVIR AND RITONAVIR [Suspect]
     Active Substance: LOPINAVIR\RITONAVIR
     Indication: Maternal exposure timing unspecified
     Route: 065
  2. EMTRICITABINE\TENOFOVIR DISOPROXIL FUMARATE [Suspect]
     Active Substance: EMTRICITABINE\TENOFOVIR DISOPROXIL FUMARATE
     Indication: Maternal exposure timing unspecified
     Route: 065

REACTIONS (2)
  - Neurodevelopmental disorder [Unknown]
  - Foetal exposure during pregnancy [Unknown]
